FAERS Safety Report 7631296-0 (Version None)
Quarter: 2011Q3

REPORT INFORMATION
  Report Type: 
  Country: None (occurrence: None)
  Receive Date: 20110701
  Receipt Date: 20101109
  Transmission Date: 20111222
  Serious: Yes (Other)
  Sender: FDA-Public Use
  Company Number: 7027090

PATIENT
  Age: 40 Year
  Sex: Male
  Weight: 142 kg

DRUGS (9)
  1. ZOLOFT [Concomitant]
  2. REBIF [Suspect]
     Indication: MULTIPLE SCLEROSIS
     Dosage: 44 MCG, 3 IN 1 WK, SUBCUTANEOUS
     Route: 058
     Dates: start: 20100510
  3. UNKNOWN (ALL OTHER THERAPEUTIC PRODUCTS) [Concomitant]
  4. VITAMIN D [Concomitant]
  5. MILK THISTLE (ALL OTHER THERAPEUTIC PRODUCTS) [Concomitant]
  6. LISINOPRIL HYDROCHLOROTHIAZIDE (PRINZIDE /00977901/) [Concomitant]
  7. BACLOFEN [Suspect]
     Indication: MUSCLE SPASMS
     Dosage: 10 MG, 3 IN 1 D
     Dates: start: 20101006, end: 20101124
  8. BACLOFEN [Suspect]
     Indication: PAIN
     Dosage: 10 MG, 3 IN 1 D
     Dates: start: 20101006, end: 20101124
  9. METFORMIN HCL [Concomitant]

REACTIONS (5)
  - MUSCLE SPASMS [None]
  - PAIN IN EXTREMITY [None]
  - SUICIDAL IDEATION [None]
  - DEPRESSION [None]
  - VISUAL IMPAIRMENT [None]
